FAERS Safety Report 9637112 (Version 1)
Quarter: 2013Q4

REPORT INFORMATION
  Report Type: Spontaneous
  Country: US (occurrence: US)
  Receive Date: 20131022
  Receipt Date: 20131022
  Transmission Date: 20140711
  Serious: Yes (Hospitalization, Other)
  Sender: FDA-Public Use
  Company Number: US-SA-2013SA104263

PATIENT
  Age: 76 Year
  Sex: Female

DRUGS (2)
  1. LANTUS [Suspect]
     Route: 051
  2. NOVOLOG [Suspect]
     Route: 065
     Dates: end: 2011

REACTIONS (4)
  - Sepsis [Unknown]
  - Device related infection [Unknown]
  - Convulsion [Unknown]
  - Polyarthritis [Unknown]
